FAERS Safety Report 23424263 (Version 1)
Quarter: 2024Q1

REPORT INFORMATION
  Report Type: Spontaneous
  Country: US (occurrence: US)
  Receive Date: 20240120
  Receipt Date: 20240120
  Transmission Date: 20240410
  Serious: No
  Sender: FDA-Public Use
  Company Number: US-AUROBINDO-AUR-APL-2023-030365

PATIENT
  Age: 5 Year
  Sex: Female
  Weight: 22.68 kg

DRUGS (2)
  1. CEFDINIR [Suspect]
     Active Substance: CEFDINIR
     Indication: Product used for unknown indication
     Dosage: 4 DOSAGE FORM (IE., ONE DOSE ON MONDAY, TWO DOSES ON TUESDAY AND ONE DOSE ON WEDNESDAY (TODAY)
     Route: 065
     Dates: start: 20230403
  2. CEFDINIR [Suspect]
     Active Substance: CEFDINIR
     Dosage: 3.5 MILLILITER, TWO TIMES A DAY
     Route: 048

REACTIONS (1)
  - Product storage error [Unknown]
